FAERS Safety Report 6387869-9 (Version None)
Quarter: 2009Q4

REPORT INFORMATION
  Report Type: 
  Country: None (occurrence: None)
  Receive Date: 20091005
  Receipt Date: 20090929
  Transmission Date: 20100525
  Serious: Yes (Hospitalization)
  Sender: FDA-Public Use
  Company Number: PL-AVENTIS-200921093GDDC

PATIENT
  Age: 61 Year
  Sex: Female
  Weight: 60 kg

DRUGS (4)
  1. ARAVA [Suspect]
     Indication: RHEUMATOID ARTHRITIS
     Dosage: DOSE: 20 MG/10MG
     Route: 048
     Dates: start: 20080619, end: 20090423
  2. MOVALIS [Concomitant]
     Indication: RHEUMATOID ARTHRITIS
     Dosage: DOSE: 7.5 TO 15 MG
     Route: 048
     Dates: start: 20080619, end: 20090323
  3. HELICID                            /00661201/ [Concomitant]
     Route: 048
     Dates: start: 20080711, end: 20090501
  4. ZALDIAR [Concomitant]
     Dosage: DOSE: 1-2 TABLET
     Route: 048
     Dates: start: 20081014, end: 20090401

REACTIONS (2)
  - BLOOD CREATININE INCREASED [None]
  - NEPHROPATHY [None]
